FAERS Safety Report 4579460-1 (Version None)
Quarter: 2005Q1

REPORT INFORMATION
  Report Type: 
  Country: None (occurrence: None)
  Receive Date: 20050210
  Receipt Date: 20050210
  Transmission Date: 20050727
  Serious: Yes (Other)
  Sender: FDA-Public Use
  Company Number: None

PATIENT
  Sex: Male
  Weight: 80 kg

DRUGS (3)
  1. GEMCITABINE [Suspect]
     Dates: start: 20021104
  2. FLUOROURACIL [Suspect]
  3. RADIATION THERAPY [Suspect]

REACTIONS (1)
  - HYPERGLYCAEMIA [None]
